FAERS Safety Report 12790798 (Version 1)
Quarter: 2016Q3

REPORT INFORMATION
  Report Type: Report from Study
  Country: US (occurrence: US)
  Receive Date: 20160929
  Receipt Date: 20160929
  Transmission Date: 20161109
  Serious: Yes (Other)
  Sender: FDA-Public Use
  Company Number: US-ROCHE-1835398

PATIENT
  Age: 64 Year
  Sex: Female
  Weight: 48 kg

DRUGS (4)
  1. BEVACIZUMAB [Suspect]
     Active Substance: BEVACIZUMAB
     Indication: CARCINOID TUMOUR
     Dosage: OVER 30-90 MINUTES ON DAY1 AND DAY15 EVERY 28 DAYS
     Route: 042
     Dates: start: 20101210
  2. TEMSIROLIMUS [Suspect]
     Active Substance: TEMSIROLIMUS
     Dosage: OVER 30-90 MINUTES ON DAY1, 8, 15 AND 22 EVERY 28 DAYS
     Route: 042
     Dates: start: 20110118
  3. TEMSIROLIMUS [Suspect]
     Active Substance: TEMSIROLIMUS
     Dosage: OVER 30-90 MINUTES ON DAY1, 8, 15 AND 22 EVERY 28 DAYS
     Route: 042
     Dates: start: 20110214
  4. TEMSIROLIMUS [Suspect]
     Active Substance: TEMSIROLIMUS
     Indication: CARCINOID TUMOUR
     Dosage: OVER 30-90 MINUTES ON DAY1, 8, 15 AND 22 EVERY 28 DAYS
     Route: 042
     Dates: start: 20101210

REACTIONS (3)
  - Anal fistula [Unknown]
  - Haemorrhoids [Unknown]
  - Blood bilirubin increased [Unknown]
